FAERS Safety Report 24071767 (Version 1)
Quarter: 2024Q3

REPORT INFORMATION
  Report Type: Report from Study
  Country: US (occurrence: US)
  Receive Date: 20240710
  Receipt Date: 20240710
  Transmission Date: 20241017
  Serious: No
  Sender: ROCHE
  Company Number: US-ROCHE-3541325

PATIENT
  Age: 5 Year
  Sex: Female
  Weight: 17.33 kg

DRUGS (1)
  1. EVRYSDI [Suspect]
     Active Substance: RISDIPLAM
     Indication: Spinal muscular atrophy
     Dosage: TAKE 4.9 ML (3.68 MG) BY MOUTH ONCE EVERY DAY
     Route: 048

REACTIONS (1)
  - Weight increased [Unknown]
